FAERS Safety Report 7957809-7 (Version None)
Quarter: 2011Q4

REPORT INFORMATION
  Report Type: 
  Country: None (occurrence: None)
  Receive Date: 20111205
  Receipt Date: 20111129
  Transmission Date: 20120403
  Serious: Yes (Hospitalization, Other)
  Sender: FDA-Public Use
  Company Number: GB-ABBOTT-11P-167-0857497-00

PATIENT
  Sex: Female

DRUGS (10)
  1. RISEDRONATE SODIUM [Concomitant]
     Indication: PRODUCT USED FOR UNKNOWN INDICATION
  2. FUSIDIC ACID [Concomitant]
     Indication: PRODUCT USED FOR UNKNOWN INDICATION
  3. ENSURE PLUS [Concomitant]
     Indication: PRODUCT USED FOR UNKNOWN INDICATION
  4. HUMIRA [Suspect]
     Indication: CROHN'S DISEASE
  5. LEFLUNOMIDE [Concomitant]
     Indication: PRODUCT USED FOR UNKNOWN INDICATION
  6. QUESTRAN [Concomitant]
     Indication: PRODUCT USED FOR UNKNOWN INDICATION
  7. ASPIRIN [Concomitant]
     Indication: PRODUCT USED FOR UNKNOWN INDICATION
  8. PREGABALIN [Concomitant]
     Indication: PRODUCT USED FOR UNKNOWN INDICATION
  9. DIPYRIDAMOLE [Concomitant]
     Indication: PRODUCT USED FOR UNKNOWN INDICATION
  10. FERROUS GLUCONATE [Concomitant]
     Indication: PRODUCT USED FOR UNKNOWN INDICATION

REACTIONS (15)
  - MOVEMENT DISORDER [None]
  - HYPOAESTHESIA [None]
  - APHASIA [None]
  - DIZZINESS [None]
  - CENTRAL NERVOUS SYSTEM LESION [None]
  - ISCHAEMIA [None]
  - GRIP STRENGTH DECREASED [None]
  - MUSCULAR WEAKNESS [None]
  - CROHN'S DISEASE [None]
  - DEMYELINATION [None]
  - PLEURITIC PAIN [None]
  - SUPRAPUBIC PAIN [None]
  - TRANSIENT ISCHAEMIC ATTACK [None]
  - CAROTID ARTERY THROMBOSIS [None]
  - CEREBROVASCULAR DISORDER [None]
